FAERS Safety Report 7437718-2 (Version None)
Quarter: 2011Q2

REPORT INFORMATION
  Report Type: 
  Country: None (occurrence: None)
  Receive Date: 20110426
  Receipt Date: 20110420
  Transmission Date: 20111010
  Serious: Yes (Death)
  Sender: FDA-Public Use
  Company Number: HU-ROCHE-772570

PATIENT
  Sex: Female
  Weight: 55 kg

DRUGS (3)
  1. SERTRALINE [Concomitant]
     Dates: start: 20070101
  2. TRASTUZUMAB [Suspect]
     Indication: BREAST CANCER
     Dosage: FORM: INFUSION. DATE OF LAST DOSE PRIOR TO SAE: 06 SEP 2010. FORM: INFUSION
     Route: 042
     Dates: start: 20100723, end: 20100922
  3. AMISULPRIDE [Concomitant]
     Dates: start: 20070101

REACTIONS (1)
  - CARDIOPULMONARY FAILURE [None]
